FAERS Safety Report 15557867 (Version 1)
Quarter: 2018Q4

REPORT INFORMATION
  Report Type: Spontaneous
  Country: US (occurrence: US)
  Receive Date: 20181027
  Receipt Date: 20181027
  Transmission Date: 20190205
  Serious: Yes (Death, Life-Threatening, Hospitalization, Other)
  Sender: FDA-Public Use
  Company Number: US-009507513-1810USA007709

PATIENT
  Age: 49 Year
  Sex: Female
  Weight: 96.7 kg

DRUGS (23)
  1. FLUCONAZOLE. [Suspect]
     Active Substance: FLUCONAZOLE
     Dosage: UNK
     Dates: start: 20180712, end: 20180909
  2. JAKAFI [Suspect]
     Active Substance: RUXOLITINIB
     Dosage: UNK
     Dates: start: 20180831
  3. METHYLPREDNISOLONE. [Suspect]
     Active Substance: METHYLPREDNISOLONE
     Dosage: 128 MILLIGRAM QD
     Route: 042
     Dates: start: 20180829, end: 20180831
  4. MYCOPHENOLATE MOFETIL. [Suspect]
     Active Substance: MYCOPHENOLATE MOFETIL
     Dosage: UNK
     Dates: start: 20180828
  5. METHYLPREDNISOLONE. [Suspect]
     Active Substance: METHYLPREDNISOLONE
     Dosage: 80 MILLIGRAM, QD
     Route: 042
     Dates: start: 20180904, end: 20180906
  6. DAPSONE. [Suspect]
     Active Substance: DAPSONE
     Dosage: UNK
     Dates: start: 20180814, end: 20180909
  7. TACROLIMUS. [Suspect]
     Active Substance: TACROLIMUS
     Dosage: UNK
     Dates: start: 20180711, end: 20180825
  8. METHYLPREDNISOLONE. [Suspect]
     Active Substance: METHYLPREDNISOLONE
     Dosage: 128 MILLIGRAM QD
     Route: 042
     Dates: start: 20180819, end: 20180821
  9. METHYLPREDNISOLONE. [Suspect]
     Active Substance: METHYLPREDNISOLONE
     Dosage: 104 MILLIGRAM QD
     Route: 042
     Dates: start: 20180822, end: 20180825
  10. METHYLPREDNISOLONE. [Suspect]
     Active Substance: METHYLPREDNISOLONE
     Dosage: 80 MILLIGRAM, QD
     Route: 042
     Dates: start: 20180825, end: 20180829
  11. ITACITINIB [Suspect]
     Active Substance: ITACITINIB
     Indication: ACUTE GRAFT VERSUS HOST DISEASE
     Dosage: 200 MILLIGRAM, QD
     Route: 048
     Dates: start: 20180817, end: 20180821
  12. PROCHLORPERAZINE. [Suspect]
     Active Substance: PROCHLORPERAZINE
     Dosage: UNK
     Dates: start: 20180709, end: 20180909
  13. VALACYCLOVIR HYDROCHLORIDE. [Suspect]
     Active Substance: VALACYCLOVIR HYDROCHLORIDE
     Dosage: 1000 MILLIGRAM
     Dates: start: 20180720, end: 20180909
  14. METHYLPREDNISOLONE. [Suspect]
     Active Substance: METHYLPREDNISOLONE
     Indication: ACUTE GRAFT VERSUS HOST DISEASE
     Dosage: 80 MILLIGRAM, QD
     Route: 042
     Dates: start: 20180815, end: 20180815
  15. METHYLPREDNISOLONE. [Suspect]
     Active Substance: METHYLPREDNISOLONE
     Dosage: 104 MILLIGRAM QD
     Route: 042
     Dates: start: 20180901, end: 20180903
  16. AMLODIPINE [Suspect]
     Active Substance: AMLODIPINE BESYLATE
     Dosage: 10 MILLIGRAM
     Dates: start: 20180816, end: 20180821
  17. URSODIOL. [Suspect]
     Active Substance: URSODIOL
     Dosage: UNK
     Dates: start: 20180706, end: 20180909
  18. METHYLPREDNISOLONE. [Suspect]
     Active Substance: METHYLPREDNISOLONE
     Dosage: 160 MILLIGRAM, QD
     Route: 042
     Dates: start: 20180816, end: 20180819
  19. FAMOTIDINE. [Suspect]
     Active Substance: FAMOTIDINE
     Dosage: UNK
     Dates: start: 20180712, end: 20180909
  20. PREVYMIS [Suspect]
     Active Substance: LETERMOVIR
     Dosage: 480 MILLIGRAM
     Dates: start: 20180706, end: 20180909
  21. METHYLPREDNISOLONE. [Suspect]
     Active Substance: METHYLPREDNISOLONE
     Dosage: 40 MILLIGRAM, QD
     Route: 042
     Dates: start: 20180906, end: 20180910
  22. OLANZAPINE. [Suspect]
     Active Substance: OLANZAPINE
     Dosage: 5 MILLIGRAM
     Dates: start: 20180709, end: 20180909
  23. SIROLIMUS. [Suspect]
     Active Substance: SIROLIMUS
     Dosage: 2 MILLIGRAM
     Dates: start: 20180825, end: 20180909

REACTIONS (26)
  - Blood bilirubin increased [Fatal]
  - Cerebrovascular accident [Unknown]
  - Rash generalised [Unknown]
  - Blister [Unknown]
  - Slow response to stimuli [Unknown]
  - Disorientation [Unknown]
  - Sepsis [Recovered/Resolved]
  - Mental status changes [Unknown]
  - Tachypnoea [Unknown]
  - Agitation [Unknown]
  - Drug ineffective [Unknown]
  - Confusional state [Unknown]
  - Pain [Unknown]
  - Mucormycosis [Fatal]
  - Aspergillus infection [Fatal]
  - Graft versus host disease [Unknown]
  - Depressed level of consciousness [Unknown]
  - Stomatitis [Recovered/Resolved]
  - Encephalopathy [Recovered/Resolved]
  - Stem cell transplant [Unknown]
  - Decreased immune responsiveness [Unknown]
  - Epidermal necrosis [Unknown]
  - Secretion discharge [Unknown]
  - Ascites [Unknown]
  - Thrombotic microangiopathy [Unknown]
  - Respiratory rate increased [Unknown]

NARRATIVE: CASE EVENT DATE: 2018
